FAERS Safety Report 5370294-7 (Version None)
Quarter: 2007Q2

REPORT INFORMATION
  Report Type: 
  Country: None (occurrence: None)
  Receive Date: 20070626
  Receipt Date: 20070615
  Transmission Date: 20071010
  Serious: Yes (Hospitalization)
  Sender: FDA-Public Use
  Company Number: FR-ROCHE-500509

PATIENT
  Age: 41 Year
  Sex: Male

DRUGS (3)
  1. FANSIDAR [Suspect]
     Indication: MALARIA
     Route: 030
     Dates: start: 20070424, end: 20070424
  2. ARTEMETHER [Suspect]
     Indication: MALARIA
     Dosage: MEDICATION REPORTED AS ARTHEMETER.
     Route: 065
     Dates: start: 20070503, end: 20070509
  3. UNSPECIFIED DRUG [Concomitant]
     Dosage: AFTER THE FIRST INJECTION OF SUFADOXINE/PYRIMETHAMINE AND PRIOR TO START WITH ARTEMETHER ON 03 MAY +
     Route: 030
     Dates: start: 20070427

REACTIONS (4)
  - CHOLESTASIS [None]
  - HAEMOLYTIC ANAEMIA [None]
  - INTERSTITIAL LUNG DISEASE [None]
  - RENAL FAILURE ACUTE [None]
